FAERS Safety Report 17875722 (Version 1)
Quarter: 2020Q2

REPORT INFORMATION
  Report Type: Report from Study
  Country: ES (occurrence: ES)
  Receive Date: 20200609
  Receipt Date: 20200609
  Transmission Date: 20200714
  Serious: Yes (Hospitalization)
  Sender: FDA-Public Use
  Company Number: ES-TEVA-2020-ES-1245805

PATIENT
  Age: 69 Year
  Sex: Male

DRUGS (6)
  1. PARACETAMOL (12A) [Concomitant]
     Active Substance: ACETAMINOPHEN
     Dosage: 3 GRAM
     Route: 048
     Dates: start: 20170321
  2. METILPREDNISOLONA (888A) [Suspect]
     Active Substance: METHYLPREDNISOLONE
     Dosage: 1 DOSAGE FORMS
     Route: 030
     Dates: start: 20170318, end: 20170318
  3. VOLTAREN [Interacting]
     Active Substance: DICLOFENAC SODIUM
     Dosage: 1 DOSAGE FORMS
     Route: 030
     Dates: start: 20170318, end: 20170321
  4. PERMIXON 160 MG CAPSULAS DURAS, 60 C?PSULAS [Concomitant]
     Indication: BENIGN PROSTATIC HYPERPLASIA
     Dosage: 160 MG
     Route: 048
     Dates: end: 20170326
  5. METAMIZOL (111A) [Concomitant]
     Active Substance: METAMIZOL SODIUM
     Dosage: 3 DOSAGE FORMS
     Route: 048
     Dates: start: 20170321, end: 20170326
  6. IMUREL 50 MG COMPRIMIDOS RECUBIERTOS CON PELICULA , 50 COMPRIMIDOS [Concomitant]
     Active Substance: AZATHIOPRINE
     Indication: COLITIS ULCERATIVE
     Dosage: 50 MG
     Route: 048

REACTIONS (2)
  - Drug interaction [Unknown]
  - Upper gastrointestinal haemorrhage [Recovered/Resolved]

NARRATIVE: CASE EVENT DATE: 20170326
